FAERS Safety Report 23763833 (Version 2)
Quarter: 2024Q2

REPORT INFORMATION
  Report Type: Report from Study
  Country: AR (occurrence: AR)
  Receive Date: 20240419
  Receipt Date: 20240528
  Transmission Date: 20240716
  Serious: Yes (Other)
  Sender: FDA-Public Use
  Company Number: AR-009507513-2404ARG008382

PATIENT
  Age: 43 Year
  Sex: Female

DRUGS (1)
  1. PEMBROLIZUMAB [Suspect]
     Active Substance: PEMBROLIZUMAB
     Indication: Hodgkin^s disease recurrent
     Dosage: 200 MG, EVERY 21 DAYS, MONOTHERAPY
     Dates: start: 20231026, end: 20231026

REACTIONS (6)
  - Malaise [Recovering/Resolving]
  - Pain [Unknown]
  - Decreased activity [Unknown]
  - Nasopharyngitis [Unknown]
  - Pulmonary mass [Unknown]
  - Rest regimen [Unknown]

NARRATIVE: CASE EVENT DATE: 20240415
